FAERS Safety Report 20144520 (Version 1)
Quarter: 2021Q4

REPORT INFORMATION
  Report Type: Spontaneous
  Country: DE (occurrence: DE)
  Receive Date: 20211203
  Receipt Date: 20211203
  Transmission Date: 20220303
  Serious: Yes (Other)
  Sender: FDA-Public Use
  Company Number: DE-STRIDES ARCOLAB LIMITED-2021SP030490

PATIENT
  Sex: Male

DRUGS (13)
  1. TACROLIMUS [Suspect]
     Active Substance: TACROLIMUS
     Indication: Prophylaxis against graft versus host disease
     Dosage: UNK
     Route: 065
  2. MYCOPHENOLATE MOFETIL [Suspect]
     Active Substance: MYCOPHENOLATE MOFETIL
     Indication: Prophylaxis against graft versus host disease
     Dosage: UNK
     Route: 065
  3. TREOSULFAN [Suspect]
     Active Substance: TREOSULFAN
     Indication: Bone marrow conditioning regimen
     Dosage: 24 GRAM PER SQUARE METRE
     Route: 065
  4. TREOSULFAN [Suspect]
     Active Substance: TREOSULFAN
     Indication: Stem cell transplant
  5. FLUDARABINE [Suspect]
     Active Substance: FLUDARABINE PHOSPHATE
     Indication: Bone marrow conditioning regimen
     Dosage: 150 MILLIGRAM/SQ. METER
     Route: 065
  6. FLUDARABINE [Suspect]
     Active Substance: FLUDARABINE PHOSPHATE
     Indication: Stem cell transplant
  7. ALEMTUZUMAB [Suspect]
     Active Substance: ALEMTUZUMAB
     Indication: Bone marrow conditioning regimen
     Dosage: 0.4 MILLIGRAM/KILOGRAM
     Route: 065
  8. ALEMTUZUMAB [Suspect]
     Active Substance: ALEMTUZUMAB
     Indication: Stem cell transplant
  9. CYCLOPHOSPHAMIDE [Suspect]
     Active Substance: CYCLOPHOSPHAMIDE
     Indication: Bone marrow conditioning regimen
     Dosage: 29 MILLIGRAM/KILOGRAM
     Route: 065
  10. CYCLOPHOSPHAMIDE [Suspect]
     Active Substance: CYCLOPHOSPHAMIDE
     Indication: Prophylaxis against graft versus host disease
     Dosage: UNK
     Route: 065
  11. CYCLOPHOSPHAMIDE [Suspect]
     Active Substance: CYCLOPHOSPHAMIDE
     Indication: Stem cell transplant
  12. RITUXIMAB [Suspect]
     Active Substance: RITUXIMAB
     Indication: Bone marrow conditioning regimen
     Dosage: 375 MILLIGRAM/SQ. METER
     Route: 065
  13. RITUXIMAB [Suspect]
     Active Substance: RITUXIMAB
     Indication: Stem cell transplant

REACTIONS (4)
  - Pneumonitis [Recovered/Resolved]
  - Cytomegalovirus infection reactivation [Recovered/Resolved]
  - Adenovirus reactivation [Recovered/Resolved]
  - Off label use [Unknown]
